FAERS Safety Report 20782801 (Version 7)
Quarter: 2024Q1

REPORT INFORMATION
  Report Type: Spontaneous
  Country: US (occurrence: US)
  Receive Date: 20220504
  Receipt Date: 20240220
  Transmission Date: 20240410
  Serious: Yes (Other)
  Sender: FDA-Public Use
  Company Number: US-PFIZER INC-202100910817

PATIENT
  Age: 66 Year
  Sex: Female
  Weight: 61.9 kg

DRUGS (2)
  1. IBRANCE [Suspect]
     Active Substance: PALBOCICLIB
     Indication: Breast cancer
     Dosage: 100 MG, 21 DAYS ON, 7 DAYS OFF
     Route: 048
     Dates: start: 20210205
  2. IBRANCE [Suspect]
     Active Substance: PALBOCICLIB
     Indication: Breast cancer metastatic
     Dosage: 75 MG
     Route: 048

REACTIONS (5)
  - Neutropenia [Unknown]
  - Product dose omission issue [Unknown]
  - COVID-19 [Unknown]
  - Neoplasm progression [Unknown]
  - Full blood count decreased [Unknown]
